FAERS Safety Report 6132509-7 (Version None)
Quarter: 2009Q1

REPORT INFORMATION
  Report Type: 
  Country: None (occurrence: None)
  Receive Date: 20090324
  Receipt Date: 20090312
  Transmission Date: 20090719
  Serious: Yes (Other)
  Sender: FDA-Public Use
  Company Number: 2009AP000688

PATIENT
  Age: 29 Year
  Sex: Female

DRUGS (11)
  1. PAROXETINE HCL [Suspect]
     Dosage: 10 MG; HS, 20 MG; QD, 10 MG; TAB; QD, 10 MG; TAB; HS
     Dates: start: 20000706
  2. PAROXETINE HCL [Suspect]
     Dosage: 10 MG; HS, 20 MG; QD, 10 MG; TAB; QD, 10 MG; TAB; HS
     Dates: start: 20000706
  3. PAROXETINE HCL [Suspect]
     Dosage: 10 MG; HS, 20 MG; QD, 10 MG; TAB; QD, 10 MG; TAB; HS
     Dates: start: 20000712
  4. PAROXETINE HCL [Suspect]
     Dosage: 10 MG; HS, 20 MG; QD, 10 MG; TAB; QD, 10 MG; TAB; HS
     Dates: start: 20000721
  5. PAROXETINE HCL [Suspect]
     Dosage: 10 MG; HS, 20 MG; QD, 10 MG; TAB; QD, 10 MG; TAB; HS
     Dates: start: 20010622
  6. ESCITALOPRAM OXALATE (ESCITALOPRAM OXALATE) [Concomitant]
  7. CLOMIPRAMINE HCL [Concomitant]
  8. DIAZEPAM [Concomitant]
  9. VENLAFAXINE HCL [Concomitant]
  10. LORAZEPAM [Concomitant]
  11. FLUOXETINE HYDROCHLORIDE (FLUOXETINE HYDROCHLORIDE) [Concomitant]

REACTIONS (24)
  - ANXIETY [None]
  - BLOOD CALCIUM DECREASED [None]
  - CHOLELITHIASIS [None]
  - CHRONIC FATIGUE SYNDROME [None]
  - DEPRESSION [None]
  - DRUG EXPOSURE DURING PREGNANCY [None]
  - DRUG WITHDRAWAL SYNDROME [None]
  - EPIGASTRIC DISCOMFORT [None]
  - FEELING ABNORMAL [None]
  - FIBROMYALGIA [None]
  - IRON DEFICIENCY ANAEMIA [None]
  - MENORRHAGIA [None]
  - NAUSEA [None]
  - NIGHTMARE [None]
  - OBSESSIVE-COMPULSIVE DISORDER [None]
  - PALPITATIONS [None]
  - PANIC ATTACK [None]
  - POSTPARTUM DEPRESSION [None]
  - PREGNANCY [None]
  - SELF-INJURIOUS IDEATION [None]
  - SUICIDAL IDEATION [None]
  - TEARFULNESS [None]
  - VITAMIN D DECREASED [None]
  - VOMITING [None]
